FAERS Safety Report 4623018-2 (Version None)
Quarter: 2005Q1

REPORT INFORMATION
  Report Type: 
  Country: None (occurrence: None)
  Receive Date: 20050329
  Receipt Date: 20050315
  Transmission Date: 20050727
  Serious: Yes (Hospitalization)
  Sender: FDA-Public Use
  Company Number: 200502208

PATIENT
  Age: 88 Year
  Sex: Female

DRUGS (2)
  1. ALESION (EPINASTINE) [Suspect]
     Indication: DERMATITIS ALLERGIC
     Dosage: 20 MG QD PO
     Route: 048
     Dates: start: 20050105, end: 20050305
  2. ESPO [Concomitant]

REACTIONS (3)
  - GINGIVAL DISORDER [None]
  - HAEMORRHAGE [None]
  - THROMBOCYTOPENIA [None]
